FAERS Safety Report 4431657-7 (Version None)
Quarter: 2004Q3

REPORT INFORMATION
  Report Type: 
  Country: None (occurrence: None)
  Receive Date: 20040721
  Receipt Date: 20040310
  Transmission Date: 20050211
  Serious: Yes (Hospitalization)
  Sender: FDA-Public Use
  Company Number: CMPQ-PR-0403S-0178

PATIENT
  Age: 65 Year
  Sex: Female
  Weight: 77.5651 kg

DRUGS (2)
  1. OMNIPAQUE 180 [Suspect]
     Indication: HAEMATURIA
     Dosage: 100 ML, SINGLE DOSE, I.V.
     Route: 042
     Dates: start: 20040308, end: 20040308
  2. OMNIPAQUE 180 [Suspect]

REACTIONS (2)
  - CHEST DISCOMFORT [None]
  - CHEST PAIN [None]
